FAERS Safety Report 25516642 (Version 3)
Quarter: 2025Q3

REPORT INFORMATION
  Report Type: Report from Study
  Country: US (occurrence: US)
  Receive Date: 20250704
  Receipt Date: 20250828
  Transmission Date: 20251020
  Serious: No
  Sender: DECIPHERA PHARMACEUTICALS
  Company Number: US-DECIPHERA PHARMACEUTICALS LLC-2025US000717

PATIENT
  Age: 73 Year
  Sex: Female

DRUGS (3)
  1. QINLOCK [Suspect]
     Active Substance: RIPRETINIB
     Indication: Gastrointestinal stromal tumour
     Dosage: 150 MILLIGRAM, QD (TOOK 3 TABLETS PER DAY)
     Route: 048
     Dates: start: 20250530, end: 202506
  2. QINLOCK [Suspect]
     Active Substance: RIPRETINIB
     Dosage: 50 MILLIGRAM, QD (ONE TABLET PER DAY)
     Route: 048
     Dates: start: 202506, end: 2025
  3. QINLOCK [Suspect]
     Active Substance: RIPRETINIB
     Dosage: 50 MILLIGRAM, TID (ONE IN THE MORNING AT 9AM, ANOTHER AT 1 PM AND THEN WORKING MY WAY TO TAKE THE TH
     Route: 048
     Dates: start: 2025

REACTIONS (25)
  - Dry mouth [Not Recovered/Not Resolved]
  - Lacrimation increased [Unknown]
  - Ageusia [Unknown]
  - Skin exfoliation [Unknown]
  - Decreased appetite [Recovering/Resolving]
  - Back pain [Unknown]
  - Somnolence [Unknown]
  - Dysphonia [Unknown]
  - Poor quality sleep [Unknown]
  - Gingival pain [Recovering/Resolving]
  - Facial pain [Unknown]
  - Rhinorrhoea [Unknown]
  - Onychoclasis [Unknown]
  - Neoplasm progression [Unknown]
  - Dyspepsia [Recovering/Resolving]
  - Nausea [Unknown]
  - Weight decreased [Unknown]
  - Dry skin [Unknown]
  - Fatigue [Unknown]
  - Constipation [Unknown]
  - Abdominal pain [Unknown]
  - Headache [Unknown]
  - Arthralgia [Unknown]
  - Intentional underdose [Unknown]
  - Inappropriate schedule of product administration [Unknown]

NARRATIVE: CASE EVENT DATE: 20250101
